FAERS Safety Report 16567339 (Version 1)
Quarter: 2019Q3

REPORT INFORMATION
  Report Type: Report from Study
  Country: DK (occurrence: DK)
  Receive Date: 20190712
  Receipt Date: 20190712
  Transmission Date: 20191004
  Serious: Yes (Life-Threatening, Other)
  Sender: FDA-Public Use
  Company Number: DK-RECRO GAINESVILLE LLC-REPH-2019-000116

PATIENT
  Age: 42 Year
  Sex: Male
  Weight: 90 kg

DRUGS (2)
  1. VERAPAMIL HYDROCHLORIDE SUSTAINED RELEASE [Suspect]
     Active Substance: VERAPAMIL HYDROCHLORIDE
     Dosage: 12 GRAM (100 TABLETS), UNK
     Route: 048
  2. ENALAPRIL [Suspect]
     Active Substance: ENALAPRIL
     Dosage: 1 GRAM (100 TABLETS), UNK
     Route: 048

REACTIONS (9)
  - Anuria [Recovering/Resolving]
  - Blood lactic acid increased [Recovering/Resolving]
  - Hyperhidrosis [Recovering/Resolving]
  - Atrioventricular block complete [Recovering/Resolving]
  - Suicide attempt [Recovering/Resolving]
  - Hypotension [Recovering/Resolving]
  - Bradycardia [Recovering/Resolving]
  - Pulmonary oedema [Recovering/Resolving]
  - Mental status changes [Recovering/Resolving]
